FAERS Safety Report 5017175-6 (Version None)
Quarter: 2006Q2

REPORT INFORMATION
  Report Type: 
  Country: None (occurrence: None)
  Receive Date: 20060525
  Receipt Date: 20060503
  Transmission Date: 20061013
  Serious: Yes (Hospitalization, Other)
  Sender: FDA-Public Use
  Company Number: US200603006084

PATIENT
  Sex: Female

DRUGS (1)
  1. HUMALOG 25% LISPRO, NPL (LISPRO 25%, KUSORI 75% NPL) PEN, DISPOSABLE [Suspect]

REACTIONS (2)
  - CORONARY ARTERY OCCLUSION [None]
  - DRUG DISPENSING ERROR [None]
